FAERS Safety Report 5533150-7 (Version None)
Quarter: 2007Q4

REPORT INFORMATION
  Report Type: 
  Country: None (occurrence: None)
  Receive Date: 20071120
  Receipt Date: 20071002
  Transmission Date: 20080405
  Serious: No
  Sender: FDA-Public Use
  Company Number: WAES 0710USA00625

PATIENT
  Age: 62 Year
  Sex: Female

DRUGS (4)
  1. JANUVIA [Suspect]
     Indication: DIABETES MELLITUS
     Dosage: PO
     Route: 048
  2. DIOVAN [Concomitant]
  3. LANTUS [Concomitant]
  4. METFORMIN HCL [Concomitant]

REACTIONS (1)
  - RASH PRURITIC [None]
